FAERS Safety Report 6577946-1 (Version None)
Quarter: 2010Q1

REPORT INFORMATION
  Report Type: 
  Country: None (occurrence: None)
  Receive Date: 20100211
  Receipt Date: 20100203
  Transmission Date: 20100710
  Serious: Yes (Life-Threatening, Hospitalization)
  Sender: FDA-Public Use
  Company Number: JP-BAYER-200912213BYL

PATIENT
  Age: 51 Year
  Sex: Male
  Weight: 83 kg

DRUGS (12)
  1. NEXAVAR [Suspect]
     Indication: RENAL CELL CARCINOMA
     Dosage: TOTAL DAILY DOSE: 800 MG  UNIT DOSE: 200 MG
     Route: 048
     Dates: start: 20090602, end: 20090615
  2. NEXAVAR [Suspect]
     Dosage: UNIT DOSE: 200 MG
     Route: 048
     Dates: start: 20090713, end: 20090907
  3. DUROTEP [Concomitant]
     Route: 062
     Dates: start: 20090602
  4. KREMEZIN [Concomitant]
     Route: 048
     Dates: start: 20090602, end: 20091013
  5. LASIX [Concomitant]
     Route: 048
     Dates: start: 20090602, end: 20091013
  6. OLMETEC [Concomitant]
     Route: 048
     Dates: start: 20090602, end: 20091013
  7. ATELEC [Concomitant]
     Route: 048
     Dates: start: 20090602, end: 20091013
  8. DIOVAN [Concomitant]
     Route: 048
     Dates: start: 20090602, end: 20091013
  9. EPOGIN [Concomitant]
     Route: 058
     Dates: start: 20090602, end: 20091013
  10. ARGAMATE [Concomitant]
     Route: 048
     Dates: start: 20090602, end: 20091013
  11. ROCALTROL [Concomitant]
     Route: 048
     Dates: start: 20090602, end: 20091013
  12. MAGMITT [Concomitant]
     Dosage: UNIT DOSE: 330 MG
     Route: 048
     Dates: start: 20090602

REACTIONS (3)
  - EPISTAXIS [None]
  - HYPERTENSION [None]
  - PULMONARY OEDEMA [None]
